FAERS Safety Report 10396446 (Version 2)
Quarter: 2014Q3

REPORT INFORMATION
  Report Type: Report from Study
  Country: BR (occurrence: BR)
  Receive Date: 20140820
  Receipt Date: 20140919
  Transmission Date: 20150326
  Serious: Yes (Hospitalization)
  Sender: FDA-Public Use
  Company Number: PHHY2014BR101549

PATIENT
  Age: 79 Year
  Sex: Female

DRUGS (1)
  1. ONBREZ [Suspect]
     Active Substance: INDACATEROL
     Indication: BRONCHOSPASM
     Dosage: UNK UKN, QD (ONCE A DAY)
     Route: 055
     Dates: start: 201103, end: 201204

REACTIONS (4)
  - Depression [Not Recovered/Not Resolved]
  - Angina unstable [Unknown]
  - Chronic obstructive pulmonary disease [Unknown]
  - Anxiety [Not Recovered/Not Resolved]

NARRATIVE: CASE EVENT DATE: 201204
